FAERS Safety Report 12935069 (Version 1)
Quarter: 2016Q4

REPORT INFORMATION
  Report Type: Spontaneous
  Country: US (occurrence: US)
  Receive Date: 20161113
  Receipt Date: 20161113
  Transmission Date: 20170207
  Serious: No
  Sender: FDA-Public Use
  Company Number: US-TAIHO ONCOLOGY INC-EU-2016-00761

PATIENT
  Sex: Male

DRUGS (11)
  1. WARFARIN [Concomitant]
     Active Substance: WARFARIN
     Dosage: NI
  2. LONSURF [Suspect]
     Active Substance: TIPIRACIL HYDROCHLORIDE\TRIFLURIDINE
     Indication: COLON CANCER
     Dosage: CYCLE 6 STARTED ON 20OCT2015
     Route: 048
     Dates: end: 2016
  3. LONSURF [Suspect]
     Active Substance: TIPIRACIL HYDROCHLORIDE\TRIFLURIDINE
     Route: 048
     Dates: start: 20151020
  4. DILTIAZEM. [Concomitant]
     Active Substance: DILTIAZEM
     Dosage: NI
  5. CLONIDINE. [Concomitant]
     Active Substance: CLONIDINE
     Dosage: NI
  6. LOVASTATIN. [Concomitant]
     Active Substance: LOVASTATIN
     Dosage: NI
  7. NEXIUM [Concomitant]
     Active Substance: ESOMEPRAZOLE MAGNESIUM
     Dosage: NI
  8. VALSARTAN. [Concomitant]
     Active Substance: VALSARTAN
     Dosage: NI
  9. METOPROLOL. [Concomitant]
     Active Substance: METOPROLOL
     Dosage: NI
  10. CYANOCOBALAMIN. [Concomitant]
     Active Substance: CYANOCOBALAMIN
     Dosage: NI
  11. FUROSEMIDE. [Concomitant]
     Active Substance: FUROSEMIDE
     Dosage: NI

REACTIONS (3)
  - Fatigue [Unknown]
  - Asthenia [Unknown]
  - Drug ineffective [Unknown]
